FAERS Safety Report 20737654 (Version 1)
Quarter: 2022Q2

REPORT INFORMATION
  Report Type: Spontaneous
  Country: GB (occurrence: GB)
  Receive Date: 20220422
  Receipt Date: 20220422
  Transmission Date: 20220721
  Serious: Yes (Other)
  Sender: FDA-Public Use
  Company Number: GB-MHRA-MED-202204092226554520-X9REJ

PATIENT
  Age: 34 Year
  Sex: Female
  Weight: 89 kg

DRUGS (2)
  1. DULOXETINE [Suspect]
     Active Substance: DULOXETINE
     Indication: Product use in unapproved indication
     Dosage: UNK
     Route: 065
  2. ESTROGEL [Concomitant]
     Active Substance: ESTRADIOL
     Indication: Product use in unapproved indication
     Dosage: UNK
     Route: 065

REACTIONS (7)
  - Hallucination [Recovered/Resolved]
  - Tremor [Not Recovered/Not Resolved]
  - Depressed mood [Recovered/Resolved]
  - Dizziness [Recovered/Resolved]
  - Nausea [Recovering/Resolving]
  - Hypoaesthesia [Recovered/Resolved]
  - Paraesthesia [Recovering/Resolving]
